FAERS Safety Report 8591715-2 (Version None)
Quarter: 2012Q3

REPORT INFORMATION
  Report Type: 
  Country: None (occurrence: None)
  Receive Date: 20120814
  Receipt Date: 20120809
  Transmission Date: 20120928
  Serious: Yes (Hospitalization, Other)
  Sender: FDA-Public Use
  Company Number: US-PFIZER INC-2011056929

PATIENT
  Age: 71 Year
  Sex: Female

DRUGS (18)
  1. PROTONIX [Concomitant]
     Dosage: 40 MG DAILY
     Route: 042
     Dates: start: 20090111
  2. COREG [Concomitant]
     Indication: CARDIAC DISORDER
     Dosage: 6.25 MG, 1 TABLET 2X/DAY
     Dates: start: 20090112
  3. DULCOLAX [Concomitant]
     Indication: CONSTIPATION
     Dosage: 10MG DAILY AS NEEDED
     Route: 054
     Dates: start: 20090112
  4. ATIVAN [Concomitant]
     Indication: CONVULSION
     Dosage: 2 MG, AS NEEDED
     Route: 042
     Dates: start: 20090112
  5. ZOFRAN [Concomitant]
     Dosage: 4 MG, 4X/DAY (EVERY 6 HOURS) AS NEEDED
     Route: 042
     Dates: start: 20090113
  6. PROMETHAZINE [Concomitant]
     Dosage: 25 MG, 4X/DAY (EVERY 6 HOURS)
     Dates: start: 20090112
  7. GLUCOVANCE [Concomitant]
     Dosage: 500 MG TABLETS 1 TABLET ONCE DAILY
     Dates: start: 20090112
  8. NOVOLIN 70/30 [Concomitant]
     Indication: DIABETES MELLITUS
     Dosage: UNK
     Route: 058
     Dates: start: 20090112
  9. ZOCOR [Concomitant]
     Indication: BLOOD CHOLESTEROL INCREASED
     Dosage: 20 MG, 1X/DAY AT BED TIME
     Route: 048
     Dates: start: 20090112
  10. DILANTIN KAPSEAL [Suspect]
     Indication: CONVULSION
     Dosage: 100 MG, EVERY EIGHT HOURS
     Route: 048
     Dates: start: 20090112
  11. DILANTIN [Suspect]
     Indication: CONVULSION
     Dosage: 100MG 1 TABLET IN THE MORNING AND TWO TABLETS IN EVENING
     Route: 048
     Dates: start: 20090113
  12. LORTAB [Concomitant]
     Indication: PAIN
     Dosage: 650 MG, 4X/DAY (EVERY 6 HRS)
     Dates: start: 20090112
  13. ACETYLSALICYLIC ACID [Concomitant]
     Dosage: 325 MG, 1 TABLET BEFORE FOOD
     Route: 048
     Dates: start: 20090113
  14. ZOFRAN [Concomitant]
     Dosage: 2 ML, 4X/DAY (EVERY 6 HOURS)
     Dates: start: 20090112
  15. PNEUMOVAX 23 [Concomitant]
     Indication: PNEUMOCOCCAL IMMUNISATION
     Dosage: UNK
     Dates: start: 20090111
  16. BIDIL [Concomitant]
     Indication: HYPERTENSION
     Dosage: 1 TABLET AT BREAK FAST AND AT SUPPER
     Dates: start: 20090112
  17. SPIRONOLACTONE [Concomitant]
     Indication: FLUID RETENTION
     Dosage: 25MG ONE TABLET ORALLY ONCE DAILY
     Route: 048
     Dates: start: 20090112
  18. MAALOX PLUS [Concomitant]
     Dosage: 30 ML, EVERY 4 HRS
     Dates: start: 20090112

REACTIONS (1)
  - STEVENS-JOHNSON SYNDROME [None]
